FAERS Safety Report 9522225 (Version 1)
Quarter: 2013Q3

REPORT INFORMATION
  Report Type: Spontaneous
  Country: US (occurrence: None)
  Receive Date: 20130911
  Receipt Date: 20130911
  Transmission Date: 20140515
  Serious: Yes (Hospitalization, Other)
  Sender: FDA-Public Use
  Company Number: US-ZYDUS-002194

PATIENT
  Age: 54 Year
  Sex: Female

DRUGS (3)
  1. METFORMIN [Suspect]
  2. ASPIRIN (ASPIRIN) [Concomitant]
  3. IBUPROFEN (IBUPROFEN) [Concomitant]

REACTIONS (13)
  - Lactic acidosis [None]
  - Unresponsive to stimuli [None]
  - Atrial fibrillation [None]
  - Metabolic acidosis [None]
  - Leukocytosis [None]
  - Pancreatic enzymes increased [None]
  - Hyperphosphataemia [None]
  - Continuous haemodiafiltration [None]
  - Nephropathy toxic [None]
  - Renal failure acute [None]
  - Chills [None]
  - Blood pressure decreased [None]
  - Body temperature decreased [None]
